FAERS Safety Report 5310567-7 (Version None)
Quarter: 2007Q1

REPORT INFORMATION
  Report Type: 
  Country: None (occurrence: None)
  Receive Date: 20070201
  Receipt Date: 20061011
  Transmission Date: 20070707
  Serious: No
  Sender: FDA-Public Use
  Company Number: 257754

PATIENT
  Age: 76 Year
  Sex: Male
  Weight: 88.4 kg

DRUGS (4)
  1. LEVEMIR [Suspect]
     Indication: DIABETES MELLITUS INSULIN-DEPENDENT
     Dosage: 18 IU, QD, SUBCUTANEOUS
     Route: 058
     Dates: start: 20061001
  2. LIPITOR [Concomitant]
  3. FLOMAX /00889901/(MORNIFLUMATE) [Concomitant]
  4. AVAPRO [Concomitant]

REACTIONS (1)
  - BLOOD GLUCOSE INCREASED [None]
